FAERS Safety Report 26095634 (Version 3)
Quarter: 2025Q4

REPORT INFORMATION
  Report Type: Spontaneous
  Country: BR (occurrence: BR)
  Receive Date: 20251127
  Receipt Date: 20251222
  Transmission Date: 20260117
  Serious: Yes (Life-Threatening, Other)
  Sender: NOVARTIS
  Company Number: BR-002147023-NVSC2025BR180441

PATIENT
  Age: 74 Year
  Sex: Male
  Weight: 62 kg

DRUGS (2)
  1. COSENTYX [Suspect]
     Active Substance: SECUKINUMAB
     Indication: Psoriatic arthropathy
     Dosage: 300 MG, QMO (300 MG CT 1 FILLED SYRINGE VD TRANS X 2 ML + 1 PEN APLIC)
     Route: 058
     Dates: end: 20251118
  2. PANTOPRAZOLE [Concomitant]
     Active Substance: PANTOPRAZOLE
     Indication: Ulcer
     Dosage: 40 MG, Q12H
     Route: 065

REACTIONS (8)
  - Lung adenocarcinoma [Not Recovered/Not Resolved]
  - Erosive oesophagitis [Unknown]
  - Gastritis erosive [Unknown]
  - Duodenal ulcer [Unknown]
  - Herpes zoster [Recovered/Resolved]
  - Gastritis [Unknown]
  - Rheumatoid lung [Unknown]
  - Lymphadenopathy [Unknown]

NARRATIVE: CASE EVENT DATE: 20250101
